FAERS Safety Report 24979120 (Version 3)
Quarter: 2025Q3

REPORT INFORMATION
  Report Type: Spontaneous
  Country: JP (occurrence: JP)
  Receive Date: 20250218
  Receipt Date: 20250701
  Transmission Date: 20251020
  Serious: Yes (Other)
  Sender: JOHNSON AND JOHNSON
  Company Number: JP-NShinyaku-EVA20250204701001307081

PATIENT
  Age: 70 Year
  Sex: Female

DRUGS (7)
  1. UPTRAVI [Suspect]
     Active Substance: SELEXIPAG
     Indication: Pulmonary arterial hypertension
     Route: 048
     Dates: start: 20170309, end: 20170315
  2. UPTRAVI [Suspect]
     Active Substance: SELEXIPAG
     Route: 048
     Dates: start: 20170316, end: 20170322
  3. UPTRAVI [Suspect]
     Active Substance: SELEXIPAG
     Route: 048
     Dates: start: 20170323, end: 20170406
  4. UPTRAVI [Suspect]
     Active Substance: SELEXIPAG
     Route: 048
     Dates: start: 20170407, end: 20170413
  5. UPTRAVI [Suspect]
     Active Substance: SELEXIPAG
     Route: 048
     Dates: start: 20170414, end: 20170526
  6. UPTRAVI [Suspect]
     Active Substance: SELEXIPAG
     Route: 048
     Dates: start: 20170527, end: 20180808
  7. UPTRAVI [Suspect]
     Active Substance: SELEXIPAG
     Route: 048
     Dates: start: 20180809

REACTIONS (11)
  - Sepsis [Unknown]
  - Bacterial parotitis [Unknown]
  - Myalgia [Unknown]
  - Dyspnoea [Unknown]
  - Headache [Recovered/Resolved]
  - Temporomandibular pain and dysfunction syndrome [Recovered/Resolved]
  - Peripheral venous disease [Unknown]
  - Activities of daily living decreased [Unknown]
  - Pulmonary imaging procedure abnormal [Unknown]
  - Oxygen consumption increased [Unknown]
  - Dyspnoea exertional [Unknown]

NARRATIVE: CASE EVENT DATE: 20170101
